FAERS Safety Report 23822988 (Version 2)
Quarter: 2024Q2

REPORT INFORMATION
  Report Type: Report from Study
  Country: CA (occurrence: CA)
  Receive Date: 20240506
  Receipt Date: 20240528
  Transmission Date: 20240715
  Serious: Yes (Hospitalization, Other)
  Sender: FDA-Public Use
  Company Number: CA-VER-202400289

PATIENT
  Age: 69 Year
  Sex: Male

DRUGS (2)
  1. TRELSTAR [Suspect]
     Active Substance: TRIPTORELIN PAMOATE
     Indication: Prostate cancer
     Dosage: 22.5 MILLIGRAM(S), 1 IN 6 MONTH, POWDER FOR PROLONGED-RELEASE SUSPENSION FOR INJECT
     Route: 030
     Dates: start: 20240510, end: 20240510
  2. TRELSTAR [Suspect]
     Active Substance: TRIPTORELIN PAMOATE
     Indication: Prostate cancer
     Dosage: POWDER FOR PROLONGED-RELEASE SUSPENSION FOR INJECT, 22.5 MILLIGRAM(S), 1 IN 6 MONTH
     Route: 030
     Dates: start: 20231027, end: 20231027

REACTIONS (7)
  - Pain [Not Recovered/Not Resolved]
  - Haemorrhage urinary tract [Recovering/Resolving]
  - Blood urine present [Recovering/Resolving]
  - Bone pain [Not Recovered/Not Resolved]
  - Fatigue [Not Recovered/Not Resolved]
  - Inappropriate schedule of product administration [Recovered/Resolved]
  - Product dose omission issue [Recovered/Resolved]

NARRATIVE: CASE EVENT DATE: 20231027
